FAERS Safety Report 13130919 (Version 4)
Quarter: 2017Q1

REPORT INFORMATION
  Report Type: Report from Study
  Country: JP (occurrence: JP)
  Receive Date: 20170119
  Receipt Date: 20170210
  Transmission Date: 20170428
  Serious: Yes (Hospitalization, Other)
  Sender: FDA-Public Use
  Company Number: JP-BEH-2017077098

PATIENT
  Age: 33 Year
  Sex: Female
  Weight: 50 kg

DRUGS (13)
  1. PREDNISOLONE. [Concomitant]
     Active Substance: PREDNISOLONE
     Dosage: UNK
     Route: 048
  2. HUMAN IMMUNOGLOBULIN (NON-COMPANY) [Suspect]
     Active Substance: HUMAN IMMUNOGLOBULIN G
     Dosage: 8G (160MG/KG), TOT
     Route: 058
  3. CHLORPHENIRAMINE                   /00072501/ [Concomitant]
     Active Substance: CHLORPHENIRAMINE
     Route: 042
  4. CHLORPHENIRAMINE                   /00072501/ [Concomitant]
     Active Substance: CHLORPHENIRAMINE
     Dosage: UNK
     Route: 042
  5. HUMAN IMMUNOGLOBULIN (NON-COMPANY) [Suspect]
     Active Substance: HUMAN IMMUNOGLOBULIN G
     Dosage: 8G (160MG/KG), TOT
     Route: 058
  6. HYDROCORTISONE. [Concomitant]
     Active Substance: HYDROCORTISONE
     Route: 042
  7. HUMAN IMMUNOGLOBULIN (NON-COMPANY) [Suspect]
     Active Substance: HUMAN IMMUNOGLOBULIN G
     Dosage: UNK
     Route: 058
  8. PREDNISOLONE. [Concomitant]
     Active Substance: PREDNISOLONE
     Route: 048
  9. HUMAN IMMUNOGLOBULIN (NON-COMPANY) [Suspect]
     Active Substance: HUMAN IMMUNOGLOBULIN G
     Dosage: 8G (160MG/KG), TOT
     Route: 058
  10. HYDROCORTISONE. [Concomitant]
     Active Substance: HYDROCORTISONE
     Dosage: UNK
     Route: 042
  11. HUMAN IMMUNOGLOBULIN (NON-COMPANY) [Suspect]
     Active Substance: HUMAN IMMUNOGLOBULIN G
     Indication: SELECTIVE IGA IMMUNODEFICIENCY
     Dosage: 4G (160MG/KG), TOT
     Route: 058
  12. HUMAN IMMUNOGLOBULIN (NC) [Suspect]
     Active Substance: HUMAN IMMUNOGLOBULIN G
     Indication: IMMUNODEFICIENCY COMMON VARIABLE
     Route: 042
  13. HUMAN IMMUNOGLOBULIN (NON-COMPANY) [Suspect]
     Active Substance: HUMAN IMMUNOGLOBULIN G
     Indication: IMMUNODEFICIENCY COMMON VARIABLE
     Dosage: 8G (160MG/KG), TOT
     Route: 058

REACTIONS (5)
  - Wheezing [Unknown]
  - Adverse reaction [Unknown]
  - Anaphylactic shock [Unknown]
  - Rash pruritic [Recovered/Resolved]
  - Oropharyngeal discomfort [Unknown]
